FAERS Safety Report 4603128-6 (Version None)
Quarter: 2005Q1

REPORT INFORMATION
  Report Type: 
  Country: None (occurrence: None)
  Receive Date: 20050214
  Receipt Date: 20041130
  Transmission Date: 20050727
  Serious: No
  Sender: FDA-Public Use
  Company Number: USA041184806

PATIENT
  Age: 54 Year
  Sex: Male

DRUGS (3)
  1. CIALIS [Suspect]
     Dosage: 10 MG AS NEEDED
     Dates: start: 20041126
  2. WELLBUTRIN [Concomitant]
  3. PRAVACHOL [Concomitant]

REACTIONS (2)
  - INSOMNIA [None]
  - MYALGIA [None]
